FAERS Safety Report 25764378 (Version 1)
Quarter: 2025Q3

REPORT INFORMATION
  Report Type: Spontaneous
  Country: US (occurrence: US)
  Receive Date: 20250905
  Receipt Date: 20250905
  Transmission Date: 20251020
  Serious: No
  Sender: DOMPE FARMACEUTICI
  Company Number: US-FARMAPROD-202501-0296

PATIENT
  Sex: Male
  Weight: 68.95 kg

DRUGS (17)
  1. OXERVATE [Suspect]
     Active Substance: CENEGERMIN-BKBJ
     Indication: Neurotrophic keratopathy
     Route: 047
     Dates: start: 20241219, end: 20250213
  2. OXERVATE [Suspect]
     Active Substance: CENEGERMIN-BKBJ
  3. MUCINEX [Concomitant]
     Active Substance: GUAIFENESIN
  4. SYSTANE (HYPROMELLOSE 2910 (4000 MPA.S)) [Concomitant]
     Active Substance: HYPROMELLOSE 2910 (4000 MPA.S)
  5. RESTASIS [Concomitant]
     Active Substance: CYCLOSPORINE
     Indication: Dry eye
  6. TIMOLOL [Concomitant]
     Active Substance: TIMOLOL
  7. PREDNISOLONE-BROMFENAC [Concomitant]
     Indication: Keratoplasty
  8. MOXIFLOXACIN [Concomitant]
     Active Substance: MOXIFLOXACIN
     Indication: Persistent corneal epithelial defect
  9. VITAMIN D3 [Concomitant]
     Active Substance: CHOLECALCIFEROL
  10. TYLENOL ARTHRITIS PAIN [Concomitant]
     Active Substance: ACETAMINOPHEN
  11. OMEPRAZOLE [Concomitant]
     Active Substance: OMEPRAZOLE
  12. ROSUVASTATIN CALCIUM [Concomitant]
     Active Substance: ROSUVASTATIN CALCIUM
  13. VALSARTAN [Concomitant]
     Active Substance: VALSARTAN
  14. PREGABALIN [Concomitant]
     Active Substance: PREGABALIN
  15. VALACYCLOVIR [Concomitant]
     Active Substance: VALACYCLOVIR HYDROCHLORIDE
  16. DUTASTERIDE [Concomitant]
     Active Substance: DUTASTERIDE
  17. VALTREX [Concomitant]
     Active Substance: VALACYCLOVIR HYDROCHLORIDE
     Indication: Ophthalmic herpes simplex

REACTIONS (1)
  - Drug ineffective [Not Recovered/Not Resolved]
